FAERS Safety Report 18129152 (Version 1)
Quarter: 2020Q3

REPORT INFORMATION
  Report Type: Spontaneous
  Country: DE (occurrence: DE)
  Receive Date: 20200810
  Receipt Date: 20200810
  Transmission Date: 20201103
  Serious: Yes (Hospitalization)
  Sender: FDA-Public Use
  Company Number: NVSC2020DE220216

PATIENT
  Age: 65 Year
  Sex: Female
  Weight: 85 kg

DRUGS (3)
  1. LISINOPRIL/HYDROCHLOROTHIAZIDE 20/12.5MG TABLETS [Suspect]
     Active Substance: HYDROCHLOROTHIAZIDE\LISINOPRIL
     Indication: PRODUCT USED FOR UNKNOWN INDICATION
     Dosage: UNK UNK, QD (12.5|20 MG, 1?0?0?0)
     Route: 065
  2. LANTUS [Concomitant]
     Active Substance: INSULIN GLARGINE
     Indication: PRODUCT USED FOR UNKNOWN INDICATION
     Dosage: 20 IU, QD (20 IE, 0?0?0?1)
     Route: 065
  3. NOVORAPID [Concomitant]
     Active Substance: INSULIN ASPART
     Indication: PRODUCT USED FOR UNKNOWN INDICATION
     Dosage: UNK(NACH SCHEMA)
     Route: 065

REACTIONS (6)
  - Oliguria [Unknown]
  - Urinary retention [Unknown]
  - Pruritus [Unknown]
  - Hyponatraemia [Unknown]
  - Pyelonephritis [Unknown]
  - Acute kidney injury [Unknown]
